FAERS Safety Report 7290409-3 (Version None)
Quarter: 2011Q1

REPORT INFORMATION
  Report Type: 
  Country: None (occurrence: None)
  Receive Date: 20110214
  Receipt Date: 20110131
  Transmission Date: 20110831
  Serious: Yes (Hospitalization)
  Sender: FDA-Public Use
  Company Number: PHHY2011US08463

PATIENT
  Sex: Female

DRUGS (1)
  1. GLEEVEC [Suspect]
     Dosage: 400 MG, QD
     Route: 048
     Dates: start: 20100601, end: 20101001

REACTIONS (5)
  - LUNG NEOPLASM [None]
  - VOMITING [None]
  - DIARRHOEA [None]
  - ASTHMA [None]
  - BRONCHITIS [None]
